FAERS Safety Report 7980784-6 (Version None)
Quarter: 2011Q4

REPORT INFORMATION
  Report Type: 
  Country: None (occurrence: None)
  Receive Date: 20111214
  Receipt Date: 20111205
  Transmission Date: 20120403
  Serious: Yes (Other)
  Sender: FDA-Public Use
  Company Number: US-ASTRAZENECA-2011SE73838

PATIENT
  Age: 39 Year
  Sex: Male

DRUGS (3)
  1. OMEPRAZOLE [Suspect]
     Route: 048
  2. NEXIUM SAMPLES [Concomitant]
     Route: 048
  3. ZANTAC [Concomitant]

REACTIONS (3)
  - VARICES OESOPHAGEAL [None]
  - OESOPHAGEAL ULCER [None]
  - HAEMORRHAGE [None]
